FAERS Safety Report 4304357-1 (Version None)
Quarter: 2004Q1

REPORT INFORMATION
  Report Type: 
  Country: None (occurrence: None)
  Receive Date: 20040223
  Receipt Date: 20040211
  Transmission Date: 20041129
  Serious: Yes (Hospitalization)
  Sender: FDA-Public Use
  Company Number: FABR-10476

PATIENT
  Age: 51 Year
  Sex: Male
  Weight: 69.4 kg

DRUGS (1)
  1. FABRAZYME [Suspect]
     Indication: FABRY'S DISEASE
     Dosage: 70 MG Q2WKS IV
     Route: 042
     Dates: start: 20030630

REACTIONS (6)
  - ATRIAL FIBRILLATION [None]
  - CORONARY ARTERIAL STENT INSERTION [None]
  - CORONARY ARTERY OCCLUSION [None]
  - FLUID OVERLOAD [None]
  - HYPERTENSION [None]
  - TRANSIENT ISCHAEMIC ATTACK [None]
